FAERS Safety Report 16719974 (Version 7)
Quarter: 2022Q1

REPORT INFORMATION
  Report Type: Spontaneous
  Country: US (occurrence: US)
  Receive Date: 20190820
  Receipt Date: 20220310
  Transmission Date: 20220423
  Serious: No
  Sender: FDA-Public Use
  Company Number: US-PFIZER INC-2019355342

PATIENT
  Age: 71 Year
  Sex: Female
  Weight: 70.31 kg

DRUGS (1)
  1. DILANTIN [Suspect]
     Active Substance: PHENYTOIN
     Indication: Seizure
     Dosage: 100 MG, 3X/DAY
     Route: 048
     Dates: start: 1985

REACTIONS (4)
  - Impaired driving ability [Unknown]
  - Decreased activity [Unknown]
  - Mental disorder [Unknown]
  - Intentional product misuse [Unknown]
